FAERS Safety Report 9280853 (Version 1)
Quarter: 2013Q2

REPORT INFORMATION
  Report Type: Spontaneous
  Country: US (occurrence: None)
  Receive Date: 20130502
  Receipt Date: 20130502
  Transmission Date: 20140414
  Serious: Yes (Hospitalization)
  Sender: FDA-Public Use
  Company Number: B0888286A

PATIENT
  Age: 66 Year
  Sex: Female

DRUGS (8)
  1. PAXIL [Suspect]
     Indication: PRODUCT USED FOR UNKNOWN INDICATION
  2. METHYLENE BLUE [Suspect]
     Indication: ENCEPHALOPATHY
     Dosage: SIX TIMES PER DAY.
     Route: 042
  3. IFOSFAMIDE [Suspect]
     Indication: NON-HODGKIN^S LYMPHOMA
  4. CARBOPLATIN [Concomitant]
  5. ETOPOSIDE [Concomitant]
  6. BUPROPION HYDROCHLORIDE [Concomitant]
  7. DEXAMETHASONE [Concomitant]
  8. APREPITANT [Concomitant]

REACTIONS (7)
  - Serotonin syndrome [None]
  - Deep vein thrombosis [None]
  - Pleural effusion [None]
  - Speech disorder [None]
  - Encephalopathy [None]
  - Infection [None]
  - Pulmonary oedema [None]
